FAERS Safety Report 20460818 (Version 1)
Quarter: 2022Q1

REPORT INFORMATION
  Report Type: Report from Study
  Country: US (occurrence: US)
  Receive Date: 20220211
  Receipt Date: 20220211
  Transmission Date: 20220424
  Serious: Yes (Hospitalization)
  Sender: FDA-Public Use
  Company Number: US-JAZZ-2021-US-019655

PATIENT
  Age: 4 Year
  Sex: Female
  Weight: 19.9 kg

DRUGS (9)
  1. ASPARAGINASE ERWINIA CHRYSANTHEMI [Suspect]
     Active Substance: ASPARAGINASE ERWINIA CHRYSANTHEMI
     Dosage: 28 MILLIGRAM, 3XWEEKLY PER 2W COURSE
     Route: 030
     Dates: start: 20200731, end: 20200812
  2. ASPARAGINASE ERWINIA CHRYSANTHEMI [Suspect]
     Active Substance: ASPARAGINASE ERWINIA CHRYSANTHEMI
     Dosage: 3XWEEKLY PER 2W COURSE
     Route: 030
     Dates: start: 20200904, end: 20200916
  3. ASPARAGINASE ERWINIA CHRYSANTHEMI [Suspect]
     Active Substance: ASPARAGINASE ERWINIA CHRYSANTHEMI
     Dosage: 28 MILLIGRAM, 3XWEEKLY PER 2W COURSE
     Route: 030
     Dates: start: 20210125, end: 20210205
  4. DEXAMETHASONE [Concomitant]
     Active Substance: DEXAMETHASONE
     Dosage: 2 MILLIGRAM / 2 TABS WITH BREAKFAST, AND 1.5 TABS WITH DINNER
     Route: 048
     Dates: start: 20210205, end: 20210225
  5. DIPHENHYDRAMINE [Concomitant]
     Active Substance: DIPHENHYDRAMINE
     Dosage: 18 MILLIGRAM, EVERY 24 HOURS
     Route: 042
     Dates: start: 20210201, end: 20210205
  6. DOXORUBICIN [Concomitant]
     Active Substance: DOXORUBICIN
     Dosage: 18 MILLIGRAM, SINGLE
     Route: 042
     Dates: start: 20210205, end: 20210205
  7. ONDANSETRON [Concomitant]
     Active Substance: ONDANSETRON
     Dosage: 8 MILLIGRAM, EVERY 24 HOURS
     Route: 042
     Dates: start: 20210205, end: 20210205
  8. PROMETHAZINE [Concomitant]
     Active Substance: PROMETHAZINE HYDROCHLORIDE
     Dosage: 9 MILLIGRAM, EVERY 6 HOURS
     Route: 042
     Dates: start: 20210205, end: 20210206
  9. VINCRISTINE [Concomitant]
     Active Substance: VINCRISTINE
     Dosage: 1.1 MILLIGRAM, SINGLE
     Route: 042
     Dates: start: 20210205, end: 20210205

REACTIONS (2)
  - Nausea [Recovered/Resolved]
  - Vomiting [Recovered/Resolved]

NARRATIVE: CASE EVENT DATE: 20210208
